FAERS Safety Report 12559123 (Version 1)
Quarter: 2016Q3

REPORT INFORMATION
  Report Type: Spontaneous
  Country: US (occurrence: US)
  Receive Date: 20160715
  Receipt Date: 20160715
  Transmission Date: 20161109
  Serious: No
  Sender: FDA-Public Use
  Company Number: US-TEVA-663443USA

PATIENT
  Age: 37 Year
  Sex: Female

DRUGS (2)
  1. ZECUITY [Suspect]
     Active Substance: SUMATRIPTAN SUCCINATE
     Route: 062
     Dates: start: 20160521, end: 20160521
  2. ZECUITY [Suspect]
     Active Substance: SUMATRIPTAN SUCCINATE
     Route: 062
     Dates: start: 20160507, end: 20160507

REACTIONS (7)
  - Drug ineffective [Unknown]
  - Application site discolouration [Unknown]
  - Application site dryness [Not Recovered/Not Resolved]
  - Incorrect drug administration duration [Unknown]
  - Paraesthesia [Unknown]
  - Application site exfoliation [Not Recovered/Not Resolved]
  - Application site erythema [Recovered/Resolved]

NARRATIVE: CASE EVENT DATE: 201605
